FAERS Safety Report 7148336-8 (Version None)
Quarter: 2010Q4

REPORT INFORMATION
  Report Type: 
  Country: None (occurrence: None)
  Receive Date: 20101209
  Receipt Date: 20101202
  Transmission Date: 20110411
  Serious: Yes (Death, Hospitalization, Other)
  Sender: FDA-Public Use
  Company Number: US-CELGENEUS-163-21880-10112624

PATIENT
  Sex: Female

DRUGS (4)
  1. REVLIMID [Suspect]
     Route: 048
     Dates: start: 20100730, end: 20101116
  2. ZAROXOLYN [Concomitant]
     Route: 065
  3. LASIX [Concomitant]
     Route: 065
  4. ARANESP [Concomitant]
     Route: 065

REACTIONS (5)
  - BACTERAEMIA [None]
  - DECUBITUS ULCER [None]
  - HYPOKALAEMIA [None]
  - MYOCARDIAL INFARCTION [None]
  - STAPHYLOCOCCAL SEPSIS [None]
